FAERS Safety Report 14226308 (Version 1)
Quarter: 2017Q4

REPORT INFORMATION
  Report Type: Spontaneous
  Country: US (occurrence: None)
  Receive Date: 20171114
  Receipt Date: 20171114
  Transmission Date: 20180321
  Serious: Yes (Other)
  Sender: FDA-Public Use
  Company Number: None

PATIENT
  Sex: Female
  Weight: 84.37 kg

DRUGS (1)
  1. NEXPLANON [Suspect]
     Active Substance: ETONOGESTREL
     Indication: CONTRACEPTION
     Dosage: ROUTE - GIVEN INTO/UNDER THE SKIN?FREQUENCY - EVERY 3 YEARS
     Route: 058
     Dates: start: 20170301, end: 20171113

REACTIONS (8)
  - Anxiety [None]
  - Mood swings [None]
  - Hypoaesthesia [None]
  - Head discomfort [None]
  - Headache [None]
  - Weight increased [None]
  - Depression [None]
  - Vision blurred [None]

NARRATIVE: CASE EVENT DATE: 20170401
